FAERS Safety Report 4973856-1 (Version None)
Quarter: 2006Q2

REPORT INFORMATION
  Report Type: 
  Country: None (occurrence: None)
  Receive Date: 20060415
  Receipt Date: 20060404
  Transmission Date: 20061013
  Serious: Yes (Hospitalization)
  Sender: FDA-Public Use
  Company Number: FR-ABBOTT-06P-056-0329835-00

PATIENT
  Age: 45 Year
  Sex: Male

DRUGS (2)
  1. LIPANTHYL [Suspect]
     Indication: HYPERCHOLESTEROLAEMIA
     Route: 048
     Dates: start: 20051215, end: 20051225
  2. LIPANTHYL [Suspect]
     Route: 048
     Dates: start: 20060101

REACTIONS (4)
  - AMYLOIDOSIS [None]
  - ARTHRALGIA [None]
  - MUSCLE SWELLING [None]
  - PAIN IN EXTREMITY [None]
